FAERS Safety Report 18610041 (Version 2)
Quarter: 2020Q4

REPORT INFORMATION
  Report Type: Spontaneous
  Country: JP (occurrence: JP)
  Receive Date: 20201214
  Receipt Date: 20201218
  Transmission Date: 20210114
  Serious: No
  Sender: FDA-Public Use
  Company Number: JP-BAUSCH-BL-2020-035479

PATIENT
  Age: 84 Year
  Sex: Male

DRUGS (3)
  1. TREPROSTINIL. [Concomitant]
     Active Substance: TREPROSTINIL
     Indication: PRODUCT USED FOR UNKNOWN INDICATION
  2. LULICON CREAM 1% [Suspect]
     Active Substance: LULICONAZOLE
     Indication: TINEA PEDIS
     Dosage: PERCUTANEOUS
     Route: 062
     Dates: start: 202009, end: 20201005
  3. CLENAFIN [Suspect]
     Active Substance: EFINACONAZOLE
     Indication: DERMATOPHYTOSIS OF NAIL
     Route: 061
     Dates: start: 202009, end: 20201005

REACTIONS (1)
  - Dermatitis contact [Recovered/Resolved]

NARRATIVE: CASE EVENT DATE: 20201002
